FAERS Safety Report 5107263-8 (Version None)
Quarter: 2006Q3

REPORT INFORMATION
  Report Type: 
  Country: None (occurrence: None)
  Receive Date: 20060914
  Receipt Date: 20060907
  Transmission Date: 20061208
  Serious: Yes (Other)
  Sender: FDA-Public Use
  Company Number: S06-USA-02301-01

PATIENT
  Age: 51 Year
  Sex: Female
  Weight: 77.1115 kg

DRUGS (5)
  1. CAMPRAL [Suspect]
     Indication: ALCOHOL DETOXIFICATION
     Dosage: 666 MG TID PO
     Route: 048
     Dates: start: 20060516, end: 20060531
  2. CAMPRAL [Suspect]
     Indication: ALCOHOL DETOXIFICATION
     Dates: start: 20060321, end: 20060515
  3. WELLBUTRIN SR [Concomitant]
  4. ATIVAN [Concomitant]
  5. LEXAPO [Concomitant]

REACTIONS (2)
  - CONVERSION DISORDER [None]
  - TREATMENT NONCOMPLIANCE [None]
